FAERS Safety Report 8609208-2 (Version None)
Quarter: 2012Q3

REPORT INFORMATION
  Report Type: 
  Country: None (occurrence: None)
  Receive Date: 20120821
  Receipt Date: 20120814
  Transmission Date: 20120928
  Serious: Yes (Death, Hospitalization)
  Sender: FDA-Public Use
  Company Number: US-CELGENEUS-163-21880-12072696

PATIENT
  Age: 80 Year
  Sex: Male
  Weight: 75.11 kg

DRUGS (27)
  1. ADRIAMYCIN PFS [Concomitant]
     Route: 065
     Dates: start: 20120307
  2. SYNTHROID [Concomitant]
     Dosage: 100 MICROGRAM
     Route: 065
  3. LEVOTHYROXINE SODIUM [Concomitant]
     Route: 065
  4. NEURONTIN [Concomitant]
     Dosage: 600 MILLIGRAM
     Route: 065
  5. REVLIMID [Suspect]
     Indication: MULTIPLE MYELOMA
     Dosage: 10 MILLIGRAM
     Route: 048
     Dates: start: 20100414
  6. REVLIMID [Suspect]
     Dosage: 10 MILLIGRAM
     Route: 048
     Dates: start: 20110302, end: 20110330
  7. MELPHALAN HYDROCHLORIDE [Suspect]
     Dosage: 5 MILLIGRAM/SQ. METER
     Route: 048
     Dates: start: 20110302, end: 20110305
  8. PREDNISOLONE [Concomitant]
     Dosage: 1% TWO DROPS OU
     Route: 047
  9. GABAPENTIN [Concomitant]
     Route: 065
  10. ASPIRIN [Concomitant]
     Dosage: 325 MILLIGRAM
     Route: 048
     Dates: start: 20100414
  11. ZOMETA [Concomitant]
     Route: 065
     Dates: start: 20111110, end: 20120116
  12. RBCS [Concomitant]
     Dosage: 3 IU (INTERNATIONAL UNIT)
     Route: 041
     Dates: start: 20120305
  13. ALPHAGAN [Concomitant]
     Dosage: 2 DROPS
     Route: 047
  14. SYNTHROID [Concomitant]
     Dosage: 200 MICROGRAM
     Route: 065
  15. MELPHALAN HYDROCHLORIDE [Suspect]
     Indication: MULTIPLE MYELOMA
     Dosage: 5 MILLIGRAM/SQ. METER
     Route: 048
     Dates: start: 20100414
  16. PREDNISONE TAB [Concomitant]
     Dosage: 14.2857 MILLIGRAM
     Route: 048
     Dates: start: 20110302, end: 20110305
  17. CYTOXAN [Concomitant]
     Route: 065
     Dates: start: 20120307
  18. VINCRISTINE [Concomitant]
     Route: 065
     Dates: start: 20120307
  19. ANTIBIOTICS [Concomitant]
     Indication: PROPHYLAXIS
     Route: 065
  20. LOPRESSOR [Concomitant]
     Dosage: 50 MILLIGRAM
     Route: 065
  21. PREDNISONE TAB [Concomitant]
     Indication: MULTIPLE MYELOMA
     Dosage: 100 MILLIGRAM
     Route: 048
     Dates: start: 20110414
  22. NEUPOGEN [Concomitant]
     Indication: PROPHYLAXIS
     Route: 065
  23. GOJI JUICE [Concomitant]
     Route: 065
  24. VELCADE [Concomitant]
     Indication: SALVAGE THERAPY
     Dates: start: 20111027, end: 20120116
  25. DEXAMETHASONE [Concomitant]
     Route: 065
     Dates: start: 20111027
  26. METOPROLOL TARTRATE [Concomitant]
     Route: 065
  27. PREDNISONE TAB [Concomitant]
     Dosage: 14.2857 MILLIGRAM
     Route: 065
     Dates: start: 20120307

REACTIONS (2)
  - SEPSIS [None]
  - PERIPHERAL T-CELL LYMPHOMA UNSPECIFIED [None]
